FAERS Safety Report 8003947-2 (Version None)
Quarter: 2011Q4

REPORT INFORMATION
  Report Type: 
  Country: None (occurrence: None)
  Receive Date: 20111222
  Receipt Date: 20111216
  Transmission Date: 20120403
  Serious: Yes (Other)
  Sender: FDA-Public Use
  Company Number: FR-RB-035713-11

PATIENT
  Age: 41 Year
  Sex: Male

DRUGS (2)
  1. SUBUTEX [Suspect]
     Dosage: 16 MG DAILY
     Route: 065
  2. SUBUTEX [Suspect]
     Indication: PRODUCT USED FOR UNKNOWN INDICATION
     Dosage: 4 MG DAILY
     Route: 065

REACTIONS (1)
  - HALLUCINATION [None]
